FAERS Safety Report 24747820 (Version 1)
Quarter: 2024Q4

REPORT INFORMATION
  Report Type: Spontaneous
  Country: US (occurrence: None)
  Receive Date: 20241218
  Receipt Date: 20241218
  Transmission Date: 20250114
  Serious: Yes (Death)
  Sender: Public
  Company Number: None

PATIENT
  Age: 67 Year
  Sex: Male
  Weight: 55.4 kg

DRUGS (3)
  1. FLUOROURACIL [Suspect]
     Active Substance: FLUOROURACIL
     Dates: end: 20241030
  2. IRINOTECAN [Suspect]
     Active Substance: IRINOTECAN
     Dates: end: 20241030
  3. LEUCOVORIN CALCIUM [Suspect]
     Active Substance: LEUCOVORIN CALCIUM
     Dates: end: 20241002

REACTIONS (5)
  - Hospice care [None]
  - Nausea [None]
  - Vomiting [None]
  - Hypophagia [None]
  - Pain [None]

NARRATIVE: CASE EVENT DATE: 20241129
